FAERS Safety Report 8455736-2 (Version None)
Quarter: 2012Q2

REPORT INFORMATION
  Report Type: 
  Country: None (occurrence: None)
  Receive Date: 20120621
  Receipt Date: 20120618
  Transmission Date: 20120825
  Serious: No
  Sender: FDA-Public Use
  Company Number: US-PFIZER INC-2012131225

PATIENT
  Sex: Female
  Weight: 58.957 kg

DRUGS (4)
  1. LYRICA [Suspect]
     Indication: ARTHRITIS
  2. HUMULIN R [Concomitant]
     Indication: DIABETES MELLITUS
     Dosage: 45 IU, DAILY
  3. LYRICA [Suspect]
     Indication: FIBROMYALGIA
     Dosage: UNK
  4. HUMULIN N [Concomitant]
     Indication: DIABETES MELLITUS
     Dosage: 50 IU, DAILY

REACTIONS (2)
  - EPIGASTRIC DISCOMFORT [None]
  - NAUSEA [None]
